FAERS Safety Report 5621856-0 (Version None)
Quarter: 2008Q1

REPORT INFORMATION
  Report Type: 
  Country: None (occurrence: None)
  Receive Date: 20080211
  Receipt Date: 20071114
  Transmission Date: 20080703
  Serious: Yes (Hospitalization)
  Sender: FDA-Public Use
  Company Number: US-BRISTOL-MYERS SQUIBB COMPANY-13983531

PATIENT
  Sex: Female

DRUGS (1)
  1. IXEMPRA [Suspect]
     Indication: BREAST CANCER
     Route: 042
     Dates: start: 20071026, end: 20071026

REACTIONS (5)
  - ALOPECIA [None]
  - HEPATIC ENZYME INCREASED [None]
  - NEUROPATHY PERIPHERAL [None]
  - NEUTROPENIA [None]
  - SKIN EXFOLIATION [None]
